FAERS Safety Report 16953052 (Version 2)
Quarter: 2020Q2

REPORT INFORMATION
  Report Type: Report from Study
  Country: GB (occurrence: GB)
  Receive Date: 20191023
  Receipt Date: 20200505
  Transmission Date: 20200713
  Serious: Yes (Other)
  Sender: FDA-Public Use
  Company Number: GB-UCBSA-2019043745

PATIENT
  Age: 71 Year
  Sex: Female
  Weight: 52 kg

DRUGS (6)
  1. BRIVARACETAM [Suspect]
     Active Substance: BRIVARACETAM
     Dosage: 50 MILLIGRAM, 2X/DAY (BID)
     Route: 048
     Dates: start: 20190222
  2. LACOSAMIDE. [Suspect]
     Active Substance: LACOSAMIDE
     Indication: EPILEPSY
     Dosage: 200 MILLIGRAM, 2X/DAY (BID)
     Route: 048
     Dates: start: 20180111
  3. LACOSAMIDE. [Suspect]
     Active Substance: LACOSAMIDE
     Dosage: 150 MILLIGRAM, 2X/DAY (BID)
     Route: 048
  4. BRIVARACETAM [Suspect]
     Active Substance: BRIVARACETAM
     Indication: EPILEPSY
     Dosage: 50 MILLIGRAM, 2X/DAY (BID)
     Route: 048
     Dates: start: 20181023, end: 2018
  5. PREGABALIN. [Concomitant]
     Active Substance: PREGABALIN
     Indication: EPILEPSY
     Dosage: 200 MILLIGRAM, 2X/DAY (BID)
     Route: 048
  6. BRIVARACETAM [Suspect]
     Active Substance: BRIVARACETAM
     Dosage: 75 MILLIGRAM, 2X/DAY (BID)
     Route: 048
     Dates: start: 201812

REACTIONS (6)
  - Generalised tonic-clonic seizure [Recovered/Resolved]
  - Weight decreased [Recovering/Resolving]
  - Increased tendency to bruise [Not Recovered/Not Resolved]
  - Partial seizures [Recovered/Resolved]
  - Fatigue [Not Recovered/Not Resolved]
  - Psychogenic seizure [Not Recovered/Not Resolved]

NARRATIVE: CASE EVENT DATE: 2018
